FAERS Safety Report 24647341 (Version 1)
Quarter: 2024Q4

REPORT INFORMATION
  Report Type: Spontaneous
  Country: US (occurrence: None)
  Receive Date: 20241120
  Receipt Date: 20241120
  Transmission Date: 20250114
  Serious: Yes (Other)
  Sender: Public
  Company Number: None

PATIENT
  Age: 14 Year
  Sex: Female

DRUGS (1)
  1. HADLIMA [Suspect]
     Active Substance: ADALIMUMAB-BWWD
     Dates: start: 20240812, end: 20241120

REACTIONS (2)
  - Injection site pain [None]
  - Therapy cessation [None]

NARRATIVE: CASE EVENT DATE: 20241120
